FAERS Safety Report 24467204 (Version 1)
Quarter: 2024Q4

REPORT INFORMATION
  Report Type: Report from Study
  Country: US (occurrence: US)
  Receive Date: 20241018
  Receipt Date: 20241018
  Transmission Date: 20250115
  Serious: No
  Sender: ROCHE
  Company Number: US-ROCHE-3554843

PATIENT
  Age: 53 Year
  Sex: Female

DRUGS (1)
  1. XOLAIR [Suspect]
     Active Substance: OMALIZUMAB
     Indication: Asthma
     Dosage: UNKNOWN
     Route: 065
     Dates: start: 20240424

REACTIONS (4)
  - Feeling abnormal [Unknown]
  - Pyrexia [Unknown]
  - Pain [Unknown]
  - Abdominal pain upper [Unknown]
